FAERS Safety Report 6197732-4 (Version None)
Quarter: 2009Q2

REPORT INFORMATION
  Report Type: 
  Country: None (occurrence: None)
  Receive Date: 20090512
  Receipt Date: 20090424
  Transmission Date: 20091009
  Serious: Yes (Hospitalization)
  Sender: FDA-Public Use
  Company Number: THYM-1001040

PATIENT
  Age: 62 Year
  Sex: Female

DRUGS (8)
  1. THYMOGLOBULIN [Suspect]
     Indication: BONE MARROW CONDITIONING REGIMEN
     Dosage: 1.5 MG/KG, QD, INTRAVENOUS
     Route: 042
     Dates: start: 20080101, end: 20080101
  2. TOTAL LYMPHOID IRRADIATION (TOTAL LYMPHOID IRRADIATION) [Concomitant]
  3. ACYCLOVIR [Concomitant]
  4. PREMARIN (ESTROGENS CONJUGATED, MEDROGESTONE) [Concomitant]
  5. FLUCONAZOLE [Concomitant]
  6. FOLIC ACID [Concomitant]
  7. LISINOPRIL (LISINOPRIL DIHYDRATE) [Concomitant]
  8. PENTAMIDINE (PENTAMIDINE) [Concomitant]

REACTIONS (6)
  - DIFFUSE LARGE B-CELL LYMPHOMA RECURRENT [None]
  - DISEASE PROGRESSION [None]
  - MYELODYSPLASTIC SYNDROME [None]
  - PYREXIA [None]
  - SUBCLAVIAN VEIN THROMBOSIS [None]
  - VASCULAR INSUFFICIENCY [None]
